FAERS Safety Report 8282733-2 (Version None)
Quarter: 2012Q2

REPORT INFORMATION
  Report Type: 
  Country: None (occurrence: None)
  Receive Date: 20120413
  Receipt Date: 20120403
  Transmission Date: 20120825
  Serious: Yes (Other)
  Sender: FDA-Public Use
  Company Number: US-VALEANT-2012VX001588

PATIENT

DRUGS (3)
  1. RADIOTHERAPY [Suspect]
     Route: 065
  2. FLUOROURACIL [Suspect]
     Route: 042
  3. TNFERADE BIOLOGIC [Suspect]
     Route: 065

REACTIONS (1)
  - PANCREATITIS [None]
